FAERS Safety Report 6377082-3 (Version None)
Quarter: 2009Q3

REPORT INFORMATION
  Report Type: 
  Country: None (occurrence: None)
  Receive Date: 20090923
  Receipt Date: 20090923
  Transmission Date: 20100115
  Serious: Yes (Hospitalization)
  Sender: FDA-Public Use
  Company Number: None

PATIENT
  Age: 62 Year
  Sex: Male
  Weight: 53.6 kg

DRUGS (1)
  1. LIDOCAINE [Suspect]
     Indication: SURGERY
     Dosage: 3-5 ML
     Dates: start: 20090813, end: 20090813

REACTIONS (1)
  - CONVULSION [None]
